FAERS Safety Report 9515845 (Version 1)
Quarter: 2013Q1

REPORT INFORMATION
  Report Type: Spontaneous
  Country: US (occurrence: None)
  Receive Date: 20130305
  Receipt Date: 20130305
  Transmission Date: 20140127
  Serious: Yes (Disabling)
  Sender: FDA-Public Use
  Company Number: 163-21880-12112580

PATIENT
  Age: 61 Year
  Sex: Male

DRUGS (7)
  1. REVLIMID [Suspect]
     Indication: PLASMA CELL MYELOMA
     Dosage: 18.75 MG, 21 IN 28 D, PO
     Route: 048
     Dates: start: 20110511
  2. ACYCLOVIR (ACICLOVIR) (TABLETS) [Concomitant]
  3. ADULT LOW DOSE ASPIRIN (ACETYLSALICYLIC ACID) (UNKNOWN)? [Concomitant]
  4. LEVOFLOXACIN (LEVOFLOXACIN) (UNKNOWN)? [Concomitant]
  5. NAPROXEN (NAPROXEN) (TABLETS) [Concomitant]
  6. PREDNISONE (PREDNISONE) (TABLETS) [Concomitant]
  7. VITAMIN D (ERGOCALCIFEROL) (TABLETS)? [Concomitant]

REACTIONS (2)
  - Constipation [None]
  - Nausea [None]
